FAERS Safety Report 21915446 (Version 2)
Quarter: 2023Q2

REPORT INFORMATION
  Report Type: Other
  Country: JP (occurrence: JP)
  Receive Date: 20230126
  Receipt Date: 20230417
  Transmission Date: 20230722
  Serious: Yes (Death, Other)
  Sender: FDA-Public Use
  Company Number: JP-CHUGAI-2022028213

PATIENT
  Age: 16 Year
  Sex: Male
  Weight: 34.8 kg

DRUGS (3)
  1. TOCILIZUMAB [Suspect]
     Active Substance: TOCILIZUMAB
     Indication: Cytokine release syndrome
     Dosage: THERAPY ONSET DATE /MAY/2021
     Route: 065
     Dates: start: 202105
  2. KYMRIAH [Suspect]
     Active Substance: TISAGENLECLEUCEL
     Indication: Acute lymphocytic leukaemia recurrent
     Dosage: TOTAL, 3.03 X10^6, MOST RECENT DOSE ADMINISTERED ON 19/MAY/2021
     Route: 041
     Dates: start: 20210519
  3. FLUDARABINE PHOSPHATE [Concomitant]
     Active Substance: FLUDARABINE PHOSPHATE
     Dosage: UNK
     Route: 065
     Dates: start: 20210514

REACTIONS (8)
  - Acute lymphocytic leukaemia recurrent [Fatal]
  - Lymphocyte count decreased [Unknown]
  - Neutrophil count decreased [Unknown]
  - Platelet count decreased [Unknown]
  - White blood cell count decreased [Unknown]
  - Enterococcal infection [Unknown]
  - Cellulitis [Unknown]
  - Hypogammaglobulinaemia [Recovered/Resolved]

NARRATIVE: CASE EVENT DATE: 20210803
